FAERS Safety Report 8046549-4 (Version None)
Quarter: 2012Q1

REPORT INFORMATION
  Report Type: 
  Country: None (occurrence: None)
  Receive Date: 20120113
  Receipt Date: 20120109
  Transmission Date: 20120608
  Serious: Yes (Hospitalization)
  Sender: FDA-Public Use
  Company Number: US-MERCK-1201USA01114

PATIENT
  Age: 70 Year
  Sex: Male

DRUGS (7)
  1. FINASTERIDE [Concomitant]
     Route: 065
  2. ASPIRIN [Concomitant]
     Route: 065
  3. LIPITOR [Concomitant]
     Route: 065
  4. JANUVIA [Suspect]
     Indication: DIABETES MELLITUS
     Route: 048
     Dates: start: 20110601, end: 20111201
  5. COUMADIN [Concomitant]
     Route: 065
  6. GLIPIZIDE [Concomitant]
     Route: 065
  7. METFORMIN [Concomitant]
     Route: 065

REACTIONS (4)
  - CARDIAC ENZYMES INCREASED [None]
  - ENZYME ABNORMALITY [None]
  - DIVERTICULITIS [None]
  - PANCREATIC DISORDER [None]
